FAERS Safety Report 7831180-3 (Version None)
Quarter: 2011Q4

REPORT INFORMATION
  Report Type: 
  Country: None (occurrence: None)
  Receive Date: 20111019
  Receipt Date: 20111012
  Transmission Date: 20120403
  Serious: Yes (Disabling)
  Sender: FDA-Public Use
  Company Number: GER/UKI/11/0021541

PATIENT
  Age: 23 Year
  Sex: Female
  Weight: 67.5 kg

DRUGS (10)
  1. CHLORDIAZEPOXIDE [Concomitant]
  2. ERYTHROMYCIN ETHYLSUCCINATE [Concomitant]
  3. CLOMIPRAMINE HCL [Concomitant]
  4. GAVISCON ADVANCE (GAVISCON ADVANCE) [Concomitant]
  5. ONDANSETRON [Suspect]
     Indication: PRODUCT USED FOR UNKNOWN INDICATION
  6. METOCLOPRAMIDE HCL [Concomitant]
  7. PROCHLORPERAZINE (PROCHLOPERAZINE) [Concomitant]
  8. CEPHALEXIN [Concomitant]
  9. CYCLIZINE (CYCLIZINE) [Concomitant]
  10. LORAZEPAM [Concomitant]

REACTIONS (1)
  - MORBID THOUGHTS [None]
